FAERS Safety Report 9332947 (Version 2)
Quarter: 2013Q3

REPORT INFORMATION
  Report Type: Spontaneous
  Country: US (occurrence: None)
  Receive Date: 20130603
  Receipt Date: 20130715
  Transmission Date: 20140515
  Serious: Yes (Life-Threatening, Hospitalization, Other)
  Sender: FDA-Public Use
  Company Number: DEP_00950_2013

PATIENT
  Sex: Female
  Weight: 81.65 kg

DRUGS (6)
  1. GRALISE [Suspect]
     Indication: FIBROMYALGIA
     Dosage: (STARTER PACK, TITRATED UP TO 1800 MG FROM 300 MG ORAL
     Dates: start: 20130422
  2. GRALISE [Suspect]
     Indication: OFF LABEL USE
     Dosage: (STARTER PACK, TITRATED UP TO 1800 MG FROM 300 MG ORAL
     Dates: start: 20130422
  3. ALEVE [Concomitant]
  4. VICODIN [Concomitant]
  5. TRAMADOL [Concomitant]
  6. VENLAFAXINE [Concomitant]

REACTIONS (5)
  - Migraine [None]
  - Faecal vomiting [None]
  - Anosmia [None]
  - Ageusia [None]
  - Small intestinal obstruction [None]
